FAERS Safety Report 11822887 (Version 1)
Quarter: 2015Q4

REPORT INFORMATION
  Report Type: Spontaneous
  Country: US (occurrence: US)
  Receive Date: 20151210
  Receipt Date: 20151210
  Transmission Date: 20160305
  Serious: No
  Sender: FDA-Public Use
  Company Number: US-SHIRE-US201516054

PATIENT
  Age: 13 Year
  Sex: Male

DRUGS (1)
  1. ELAPRASE [Suspect]
     Active Substance: IDURSULFASE
     Indication: MUCOPOLYSACCHARIDOSIS II
     Dosage: 36 MG, 1X/WEEK
     Route: 041
     Dates: start: 20140430

REACTIONS (2)
  - Agitation [Unknown]
  - Device issue [Recovered/Resolved]

NARRATIVE: CASE EVENT DATE: 201511
